FAERS Safety Report 14415809 (Version 3)
Quarter: 2020Q3

REPORT INFORMATION
  Report Type: Spontaneous
  Country: US (occurrence: US)
  Receive Date: 20180122
  Receipt Date: 20200807
  Transmission Date: 20201102
  Serious: Yes (Life-Threatening, Hospitalization, Other)
  Sender: FDA-Public Use
  Company Number: US-BRISTOL-MYERS SQUIBB COMPANY-BMS-2018-002452

PATIENT
  Sex: Male

DRUGS (1)
  1. KENALOG?10 [Suspect]
     Active Substance: TRIAMCINOLONE ACETONIDE
     Indication: MYOSITIS
     Dosage: UNK
     Route: 050

REACTIONS (2)
  - Systemic bacterial infection [Unknown]
  - Intentional product use issue [Unknown]
